FAERS Safety Report 17930686 (Version 2)
Quarter: 2020Q3

REPORT INFORMATION
  Report Type: Spontaneous
  Country: US (occurrence: US)
  Receive Date: 20200623
  Receipt Date: 20200820
  Transmission Date: 20201103
  Serious: No
  Sender: FDA-Public Use
  Company Number: US-PFIZER INC-2019487616

PATIENT
  Age: 13 Year
  Sex: Male
  Weight: 37.19 kg

DRUGS (3)
  1. GENOTROPIN [Suspect]
     Active Substance: SOMATROPIN
     Dosage: 1.6 MG, DAILY
     Dates: start: 20191009
  2. GENOTROPIN [Suspect]
     Active Substance: SOMATROPIN
     Indication: GROWTH DISORDER
     Dosage: 1.8 MG, DAILY
     Dates: start: 20191008
  3. GENOTROPIN [Suspect]
     Active Substance: SOMATROPIN
     Dosage: 1.6 MG, DAILY
     Dates: start: 20191012

REACTIONS (3)
  - Device issue [Unknown]
  - Device dispensing error [Unknown]
  - Mechanical urticaria [Recovered/Resolved]

NARRATIVE: CASE EVENT DATE: 20191008
